FAERS Safety Report 19282838 (Version 1)
Quarter: 2021Q2

REPORT INFORMATION
  Report Type: Spontaneous
  Country: NL (occurrence: PL)
  Receive Date: 20210520
  Receipt Date: 20210520
  Transmission Date: 20210717
  Serious: Yes (Death, Other)
  Sender: FDA-Public Use
  Company Number: PL-FRESENIUS KABI-FK202105138

PATIENT
  Age: 83 Year
  Sex: Male

DRUGS (8)
  1. CLINDAMYCIN. [Suspect]
     Active Substance: CLINDAMYCIN
     Indication: PNEUMONIA
     Dosage: CLINDAMYCIN 600
     Route: 042
     Dates: start: 20210316, end: 20210319
  2. CEFTRIAXONE SODIUM. [Suspect]
     Active Substance: CEFTRIAXONE SODIUM
     Indication: PNEUMONIA
  3. CEFTRIAXONE SODIUM. [Suspect]
     Active Substance: CEFTRIAXONE SODIUM
     Indication: RESPIRATORY FAILURE
     Route: 042
     Dates: start: 20210301, end: 20210311
  4. AMIKACIN SULFATE. [Suspect]
     Active Substance: AMIKACIN SULFATE
     Indication: RESPIRATORY FAILURE
     Dosage: BIODACYNA 1.0
     Route: 042
     Dates: start: 20210302, end: 20210311
  5. AMIKACIN SULFATE. [Suspect]
     Active Substance: AMIKACIN SULFATE
     Indication: PNEUMONIA
  6. CLINDAMYCIN. [Suspect]
     Active Substance: CLINDAMYCIN
     Indication: RESPIRATORY FAILURE
  7. IMIPENEM/CILASTATIN SODIUM [Suspect]
     Active Substance: CILASTATIN SODIUM\IMIPENEM
     Indication: PNEUMONIA
  8. IMIPENEM/CILASTATIN SODIUM [Suspect]
     Active Substance: CILASTATIN SODIUM\IMIPENEM
     Indication: RESPIRATORY FAILURE
     Route: 042
     Dates: start: 20210310, end: 20210316

REACTIONS (1)
  - Diarrhoea [Fatal]
